FAERS Safety Report 8882203 (Version 1)
Quarter: 2012Q4

REPORT INFORMATION
  Report Type: 
  Country: US (occurrence: US)
  Receive Date: 20121102
  Receipt Date: 20121102
  Transmission Date: 20130627
  Serious: No
  Sender: FDA-Public Use
  Company Number: US-ABBOTT-12P-163-0905270-00

PATIENT
  Sex: Female
  Weight: 95.34 kg

DRUGS (5)
  1. TEVETEN HCT [Suspect]
     Indication: HYPERTENSION
     Route: 048
     Dates: start: 201202
  2. APRISO [Concomitant]
     Indication: COLITIS ULCERATIVE
     Dosage: 4 capsules daily
     Dates: start: 201201
  3. BUDESONIDE EC [Concomitant]
     Indication: COLITIS ULCERATIVE
     Dosage: Three 3 mg casules daily
     Dates: start: 201111
  4. SIMVASTATIN [Concomitant]
     Indication: BLOOD CHOLESTEROL INCREASED
     Route: 048
     Dates: start: 2009
  5. OMEPRAZOLE [Concomitant]
     Indication: GASTROOESOPHAGEAL REFLUX DISEASE
     Route: 048
     Dates: start: 2005

REACTIONS (1)
  - Headache [Not Recovered/Not Resolved]
